FAERS Safety Report 9836040 (Version 3)
Quarter: 2014Q1

REPORT INFORMATION
  Report Type: Spontaneous
  Country: JP (occurrence: JP)
  Receive Date: 20140122
  Receipt Date: 20140217
  Transmission Date: 20141002
  Serious: Yes (Hospitalization, Other)
  Sender: FDA-Public Use
  Company Number: JP-ROCHE-1336458

PATIENT
  Age: 1 Year
  Sex: Female
  Weight: 10 kg

DRUGS (7)
  1. ACTEMRA [Suspect]
     Indication: TAKAYASU^S ARTERITIS
     Route: 041
     Dates: start: 20110906, end: 20110920
  2. ACTEMRA [Suspect]
     Indication: TAKAYASU^S ARTERITIS
     Dosage: DOSAGE UNCERTAIN
     Route: 041
     Dates: start: 20111021
  3. ACTEMRA [Suspect]
     Indication: TAKAYASU^S ARTERITIS
     Route: 041
  4. PREDNISOLONE [Suspect]
     Indication: TAKAYASU^S ARTERITIS
     Route: 048
  5. PREDNISOLONE [Suspect]
     Indication: TAKAYASU^S ARTERITIS
     Dosage: 0.8MG/KG(5-6MG)
     Route: 048
  6. ASPIRIN [Concomitant]
     Indication: TAKAYASU^S ARTERITIS
     Route: 048
  7. ALFAROL [Concomitant]
     Dosage: DOSAGE IS UNCERTAIN.
     Route: 048

REACTIONS (8)
  - Respiratory syncytial virus infection [Recovered/Resolved]
  - Thrombocytopenia [Recovered/Resolved]
  - Cellulitis [Not Recovered/Not Resolved]
  - Cerebral haemorrhage [Unknown]
  - Thrombotic cerebral infarction [Unknown]
  - Platelet count decreased [Recovered/Resolved]
  - White blood cell count decreased [Unknown]
  - Off label use [Unknown]
